FAERS Safety Report 8999714 (Version 1)
Quarter: 2013Q1

REPORT INFORMATION
  Report Type: Spontaneous
  Country: JP (occurrence: JP)
  Receive Date: 20130102
  Receipt Date: 20130102
  Transmission Date: 20140127
  Serious: Yes (Hospitalization)
  Sender: FDA-Public Use
  Company Number: JP-VIIV HEALTHCARE LIMITED-B0854904A

PATIENT
  Age: 59 Year
  Sex: Male

DRUGS (1)
  1. COMBIVIR [Suspect]
     Indication: HIV INFECTION
     Route: 048

REACTIONS (8)
  - Histiocytosis haematophagic [Recovering/Resolving]
  - Immune reconstitution inflammatory syndrome [Unknown]
  - Aspartate aminotransferase increased [Unknown]
  - Alanine aminotransferase increased [Unknown]
  - Langerhans^ cell histiocytosis [Unknown]
  - Diarrhoea [Unknown]
  - Platelet count decreased [Unknown]
  - Serum ferritin increased [Unknown]
